FAERS Safety Report 6021151-4 (Version None)
Quarter: 2008Q4

REPORT INFORMATION
  Report Type: 
  Country: None (occurrence: None)
  Receive Date: 20081224
  Receipt Date: 20081224
  Transmission Date: 20090506
  Serious: Yes (Hospitalization)
  Sender: FDA-Public Use
  Company Number: None

PATIENT
  Age: 24 Year
  Sex: Male

DRUGS (1)
  1. RISPERIDONE [Suspect]
     Indication: SCHIZOAFFECTIVE DISORDER
     Dosage: 37.5 MG OTHER IM
     Route: 030
     Dates: start: 20080902, end: 20081215

REACTIONS (3)
  - BLOOD PROLACTIN INCREASED [None]
  - GYNAECOMASTIA [None]
  - WEIGHT INCREASED [None]
